FAERS Safety Report 16758340 (Version 1)
Quarter: 2019Q3

REPORT INFORMATION
  Report Type: Spontaneous
  Country: US (occurrence: US)
  Receive Date: 20190830
  Receipt Date: 20190830
  Transmission Date: 20191005
  Serious: No
  Sender: FDA-Public Use
  Company Number: US-ASTRAZENECA-2019SF23213

PATIENT
  Sex: Female

DRUGS (1)
  1. NEXIUM 24HR [Suspect]
     Active Substance: ESOMEPRAZOLE MAGNESIUM
     Dosage: UNK (TAKING FOUR NEXIUM 24HR PER DAY)
     Route: 048
     Dates: start: 201908

REACTIONS (3)
  - Intentional product use issue [Unknown]
  - Insomnia [Unknown]
  - Dyskinesia [Unknown]
